FAERS Safety Report 12439651 (Version 1)
Quarter: 2016Q2

REPORT INFORMATION
  Report Type: Spontaneous
  Country: US (occurrence: US)
  Receive Date: 20160606
  Receipt Date: 20160606
  Transmission Date: 20160815
  Serious: No
  Sender: FDA-Public Use
  Company Number: US-PFIZER INC-2016278925

PATIENT
  Age: 39 Year
  Sex: Male

DRUGS (1)
  1. SONATA [Suspect]
     Active Substance: ZALEPLON
     Indication: NEUROPATHY PERIPHERAL
     Dosage: 10 MG, DAILY (5 MG CAPSULE - TAKE 2 CAPSULE(S) EVERY DAY)
     Route: 048

REACTIONS (1)
  - Drug ineffective for unapproved indication [Unknown]
